FAERS Safety Report 10027921 (Version 1)
Quarter: 2014Q1

REPORT INFORMATION
  Report Type: Spontaneous
  Country: US (occurrence: US)
  Receive Date: 20140321
  Receipt Date: 20140321
  Transmission Date: 20141002
  Serious: Yes (Other)
  Sender: FDA-Public Use
  Company Number: US-AMGEN-USASP2014019455

PATIENT
  Age: 47 Year
  Sex: Female
  Weight: 80.73 kg

DRUGS (10)
  1. ENBREL [Suspect]
     Indication: PRODUCT USED FOR UNKNOWN INDICATION
     Dosage: 50 MG, QWK
     Route: 058
  2. IBUPROFEN [Concomitant]
     Dosage: UNK
  3. SIMVASTATIN [Concomitant]
     Dosage: 10 MG, UNK
  4. GLIPIZIDE/METFORMIN [Concomitant]
     Dosage: 5-500 MG
  5. FENOFIBRATE [Concomitant]
     Dosage: 160 MG, UNK
  6. AMITRIPTYLIN [Concomitant]
     Dosage: 50 MG, UNK
  7. ASPIRIN CHILDREN [Concomitant]
     Dosage: 81 MG, UNK
  8. VITAMIN E                          /00110501/ [Concomitant]
     Dosage: 100 UNIT, UNK
  9. NIACIN [Concomitant]
     Dosage: 125 MG, UNK
  10. FISH OIL [Concomitant]
     Dosage: UNK

REACTIONS (5)
  - Uterine leiomyoma [Recovered/Resolved]
  - Endometriosis [Recovered/Resolved]
  - Influenza [Unknown]
  - Vomiting [Unknown]
  - Diarrhoea [Unknown]
